FAERS Safety Report 9202627 (Version 1)
Quarter: 2013Q2

REPORT INFORMATION
  Report Type: Spontaneous
  Country: CL (occurrence: CL)
  Receive Date: 20130401
  Receipt Date: 20130401
  Transmission Date: 20140414
  Serious: Yes (Other)
  Sender: FDA-Public Use
  Company Number: CL-BAYER-2013-032404

PATIENT
  Age: 33 Year
  Sex: Female

DRUGS (2)
  1. YAZ [Suspect]
     Indication: CONTRACEPTION
     Dosage: UNK
     Route: 048
     Dates: start: 20130214, end: 20130307
  2. YAZ [Suspect]
     Indication: CONTRACEPTION
     Dosage: UNK
     Route: 048
     Dates: end: 201210

REACTIONS (4)
  - Inappropriate schedule of drug administration [None]
  - Withdrawal bleed [Recovered/Resolved]
  - Urinary tract infection [Recovered/Resolved]
  - Bacterial test positive [Recovered/Resolved]
